FAERS Safety Report 8863894 (Version 1)
Quarter: 2012Q4

REPORT INFORMATION
  Report Type: 
  Country: US (occurrence: US)
  Receive Date: 20121024
  Receipt Date: 20121024
  Transmission Date: 20130627
  Serious: No
  Sender: FDA-Public Use
  Company Number: US-AMGEN-USASP2011064481

PATIENT
  Age: 62 Year
  Weight: 69.39 kg

DRUGS (5)
  1. ENBREL [Suspect]
     Indication: PRODUCT USED FOR UNKNOWN INDICATION
     Dosage: 50 mg, qwk
     Route: 058
  2. DIOVAN [Concomitant]
     Dosage: 40 mg, UNK
  3. ARAVA [Concomitant]
     Dosage: 10 mg, UNK
     Route: 048
  4. IBUPROFEN [Concomitant]
     Dosage: 200 mg, UNK
     Route: 048
  5. PRILOSEC                           /00661201/ [Concomitant]
     Dosage: 10 mg, UNK
     Route: 048

REACTIONS (1)
  - Injection site warmth [Recovered/Resolved]
